FAERS Safety Report 21324652 (Version 1)
Quarter: 2022Q3

REPORT INFORMATION
  Report Type: Spontaneous
  Country: SE (occurrence: SE)
  Receive Date: 20220912
  Receipt Date: 20220912
  Transmission Date: 20221027
  Serious: Yes (Other)
  Sender: FDA-Public Use
  Company Number: None

PATIENT
  Age: 36 Year
  Sex: Female
  Weight: 57 kg

DRUGS (4)
  1. TOPIRAMATE [Suspect]
     Active Substance: TOPIRAMATE
     Indication: Migraine
     Dosage: 25 MG. FIRST WEEK 25MG/DAY. SECOND WEEK 50MG/DAY. THIRD WEEK 75 MG/DAY. FOURTH WEEK 100 MG
     Route: 048
     Dates: start: 20210416
  2. CITALOPRAM HYDROBROMIDE [Concomitant]
     Active Substance: CITALOPRAM HYDROBROMIDE
     Route: 048
     Dates: start: 20161013
  3. VAXZEVRIA [Concomitant]
     Active Substance: AZD-1222
     Dates: start: 20210517, end: 20210517
  4. BETAPRED [Concomitant]
     Active Substance: BETAMETHASONE SODIUM PHOSPHATE
     Dosage: 0.5 MG TABLET DISSOLVED IN LIQUID 3-5 DAYS IN A ROW
     Route: 048
     Dates: start: 20210521

REACTIONS (6)
  - Mental impairment [Recovering/Resolving]
  - Dizziness [Recovering/Resolving]
  - Presyncope [Not Recovered/Not Resolved]
  - Limb discomfort [Recovered/Resolved]
  - Disturbance in attention [Recovering/Resolving]
  - Memory impairment [Not Recovered/Not Resolved]

NARRATIVE: CASE EVENT DATE: 20210505
